FAERS Safety Report 14828860 (Version 3)
Quarter: 2020Q2

REPORT INFORMATION
  Report Type: Spontaneous
  Country: US (occurrence: US)
  Receive Date: 20180430
  Receipt Date: 20200608
  Transmission Date: 20200713
  Serious: Yes (Other)
  Sender: FDA-Public Use
  Company Number: US-PFIZER INC-2017551564

PATIENT
  Age: 50 Year
  Sex: Female

DRUGS (2)
  1. XELJANZ XR [Suspect]
     Active Substance: TOFACITINIB CITRATE
     Indication: RHEUMATOID ARTHRITIS
  2. XELJANZ XR [Suspect]
     Active Substance: TOFACITINIB CITRATE
     Indication: OSTEOARTHRITIS
     Dosage: 11 MG, 1X/DAY
     Route: 048
     Dates: start: 2018

REACTIONS (13)
  - Arthritis [Unknown]
  - Pain in extremity [Unknown]
  - Bronchitis [Unknown]
  - Peripheral swelling [Unknown]
  - Joint swelling [Unknown]
  - Muscle spasms [Unknown]
  - Synovitis [Unknown]
  - Erythema [Unknown]
  - Pneumonia [Unknown]
  - Back pain [Unknown]
  - Hypocalcaemia [Unknown]
  - Movement disorder [Unknown]
  - Arthralgia [Unknown]

NARRATIVE: CASE EVENT DATE: 2020
